FAERS Safety Report 15273159 (Version 2)
Quarter: 2018Q3

REPORT INFORMATION
  Report Type: Spontaneous
  Country: DE (occurrence: DE)
  Receive Date: 20180813
  Receipt Date: 20180831
  Transmission Date: 20181010
  Serious: Yes (Death, Hospitalization)
  Sender: FDA-Public Use
  Company Number: DE-ELI_LILLY_AND_COMPANY-DE201808004500

PATIENT
  Age: 76 Year
  Sex: Female

DRUGS (1)
  1. OLUMIANT [Suspect]
     Active Substance: BARICITINIB
     Indication: PRODUCT USED FOR UNKNOWN INDICATION
     Dosage: UNK, UNKNOWN
     Route: 048

REACTIONS (8)
  - Diverticular perforation [Unknown]
  - Liver abscess [Unknown]
  - Nausea [Unknown]
  - Dehydration [Unknown]
  - General physical health deterioration [Unknown]
  - Sepsis [Fatal]
  - Arthropathy [Unknown]
  - Peritonitis [Unknown]

NARRATIVE: CASE EVENT DATE: 20180719
